FAERS Safety Report 7592981-2 (Version None)
Quarter: 2011Q3

REPORT INFORMATION
  Report Type: 
  Country: None (occurrence: None)
  Receive Date: 20110706
  Receipt Date: 20110614
  Transmission Date: 20111222
  Serious: Yes (Congenital Anomaly)
  Sender: FDA-Public Use
  Company Number: US-GLAXOSMITHKLINE-A0934846A

PATIENT
  Sex: Female

DRUGS (2)
  1. PAXIL [Suspect]
     Indication: PRODUCT USED FOR UNKNOWN INDICATION
     Route: 064
  2. ZANTAC [Concomitant]
     Route: 064

REACTIONS (8)
  - CONGENITAL ANOMALY [None]
  - MATERNAL EXPOSURE DURING PREGNANCY [None]
  - CEREBELLAR HYPOPLASIA [None]
  - DYSMORPHISM [None]
  - HYPOTELORISM OF ORBIT [None]
  - CHONDRODYSTROPHY [None]
  - CHOANAL ATRESIA [None]
  - DEVELOPMENTAL DELAY [None]
